FAERS Safety Report 8528427-7 (Version None)
Quarter: 2012Q3

REPORT INFORMATION
  Report Type: 
  Country: None (occurrence: None)
  Receive Date: 20120722
  Receipt Date: 20120712
  Transmission Date: 20120928
  Serious: Yes (Hospitalization, Other)
  Sender: FDA-Public Use
  Company Number: US-BRISTOL-MYERS SQUIBB COMPANY-16651549

PATIENT
  Age: 43 Year
  Sex: Female

DRUGS (3)
  1. METHOTREXATE [Concomitant]
  2. ORENCIA [Suspect]
     Dosage: LAST INF IN MAY2012 THERAPY DATES:FEB12,MAR2012,APR2012.
     Route: 042
     Dates: start: 20120101
  3. COUMADIN [Concomitant]

REACTIONS (1)
  - THROMBOSIS [None]
